FAERS Safety Report 5064833-3 (Version None)
Quarter: 2006Q3

REPORT INFORMATION
  Report Type: 
  Country: None (occurrence: None)
  Receive Date: 20060728
  Receipt Date: 20060719
  Transmission Date: 20061208
  Serious: Yes (Other)
  Sender: FDA-Public Use
  Company Number: JP-BRISTOL-MYERS SQUIBB COMPANY-13447834

PATIENT
  Age: 64 Year
  Sex: Male

DRUGS (3)
  1. BRIPLATIN [Suspect]
     Indication: HYPOPHARYNGEAL CANCER
     Route: 041
     Dates: start: 20020829, end: 20021003
  2. RANDA [Suspect]
     Indication: HYPOPHARYNGEAL CANCER
     Route: 041
     Dates: start: 20020829, end: 20021003
  3. FLUOROPLEX [Suspect]
     Indication: HYPOPHARYNGEAL CANCER
     Route: 041
     Dates: start: 20020930, end: 20021003

REACTIONS (2)
  - LARYNGEAL STENOSIS [None]
  - PHARYNGEAL STENOSIS [None]
